FAERS Safety Report 16344307 (Version 2)
Quarter: 2019Q2

REPORT INFORMATION
  Report Type: Spontaneous
  Country: FR (occurrence: FR)
  Receive Date: 20190522
  Receipt Date: 20190606
  Transmission Date: 20190711
  Serious: Yes (Hospitalization)
  Sender: FDA-Public Use
  Company Number: FR-PFIZER INC-2019211160

PATIENT
  Age: 48 Year
  Sex: Female
  Weight: 56 kg

DRUGS (7)
  1. PACLITAXEL. [Suspect]
     Active Substance: PACLITAXEL
     Indication: OVARIAN CANCER
     Dosage: 276 MG, 1X/DAY
     Route: 042
     Dates: start: 20190409, end: 20190409
  2. ONDANSETRON [Suspect]
     Active Substance: ONDANSETRON
     Indication: PREMEDICATION
     Dosage: 1 DF, 1X/DAY
     Route: 042
     Dates: start: 20190409, end: 20190409
  3. AZANTAC [Suspect]
     Active Substance: RANITIDINE HYDROCHLORIDE
     Indication: PREMEDICATION
     Dosage: 1 DF (50 MG/2 ML), 1X/DAY
     Route: 042
     Dates: start: 20190409, end: 20190409
  4. EMEND [Suspect]
     Active Substance: APREPITANT
     Indication: PREMEDICATION
     Dosage: 125 MG, 1X/DAY
     Route: 048
     Dates: start: 20190409, end: 20190409
  5. METHYLPREDNISOLONE MYLAN [METHYLPREDNISOLONE HEMISUCCINATE] [Suspect]
     Active Substance: METHYLPREDNISOLONE HEMISUCCINATE
     Indication: PREMEDICATION
     Dosage: 100 MG, 1X/DAY
     Route: 042
     Dates: start: 20190409, end: 20190409
  6. EMEND [Concomitant]
     Active Substance: APREPITANT
     Indication: PREMEDICATION
     Dosage: 80 MG, 1X/DAY
     Route: 048
     Dates: start: 20190410, end: 20190411
  7. POLARAMINE [Suspect]
     Active Substance: DEXCHLORPHENIRAMINE MALEATE
     Indication: PREMEDICATION
     Dosage: 1 DF (5 MG/1 ML), 1X/DAY
     Route: 042
     Dates: start: 20190409, end: 20190409

REACTIONS (3)
  - Hypersensitivity [Recovered/Resolved]
  - Coma [Recovered/Resolved]
  - Seizure [Recovered/Resolved]

NARRATIVE: CASE EVENT DATE: 20190409
